FAERS Safety Report 5555369-1 (Version None)
Quarter: 2007Q4

REPORT INFORMATION
  Report Type: 
  Country: None (occurrence: None)
  Receive Date: 20071130
  Receipt Date: 20070706
  Transmission Date: 20080405
  Serious: No
  Sender: FDA-Public Use
  Company Number: US200704001292

PATIENT
  Age: 45 Year
  Sex: Male
  Weight: 114.7 kg

DRUGS (5)
  1. BYETTA [Suspect]
     Indication: TYPE 2 DIABETES MELLITUS
     Dosage: 5 UG, 2/D, SUBCUTANEOUS ; 10 UG, 2/D, SUBCUTANEOUS
     Route: 058
     Dates: start: 20070122, end: 20070221
  2. BYETTA [Suspect]
     Indication: TYPE 2 DIABETES MELLITUS
     Dosage: 5 UG, 2/D, SUBCUTANEOUS ; 10 UG, 2/D, SUBCUTANEOUS
     Route: 058
     Dates: start: 20070222
  3. METFORMIN HCL [Concomitant]
  4. GLIPIZIDE W/METFORMIN (GLIPIZIDE, METFORMIN) [Concomitant]
  5. ACTOS [Concomitant]

REACTIONS (4)
  - INJECTION SITE PAIN [None]
  - MYALGIA [None]
  - PRURITUS [None]
  - STRESS AT WORK [None]
